FAERS Safety Report 7835090-7 (Version None)
Quarter: 2011Q4

REPORT INFORMATION
  Report Type: 
  Country: None (occurrence: None)
  Receive Date: 20111024
  Receipt Date: 20111011
  Transmission Date: 20120403
  Serious: Yes (Other)
  Sender: FDA-Public Use
  Company Number: DE-ELI_LILLY_AND_COMPANY-DE201110002597

PATIENT
  Age: 69 Year
  Sex: Male

DRUGS (2)
  1. CYMBALTA [Suspect]
     Indication: DEPRESSION
     Dosage: 30 MG, EACH MORNING
     Route: 048
     Dates: start: 20080101
  2. PROPAFENONE HCL [Concomitant]
     Indication: TACHYARRHYTHMIA
     Dosage: 150 MG, BID
     Route: 048
     Dates: start: 20080101

REACTIONS (1)
  - LONG QT SYNDROME [None]
